FAERS Safety Report 7290256-2 (Version None)
Quarter: 2011Q1

REPORT INFORMATION
  Report Type: 
  Country: None (occurrence: None)
  Receive Date: 20110201
  Receipt Date: 20110125
  Transmission Date: 20110831
  Serious: Yes (Hospitalization, Other)
  Sender: FDA-Public Use
  Company Number: 20108632

PATIENT
  Age: 42 Year
  Sex: Male

DRUGS (1)
  1. GABALON INTRATHECAL(BACLOFEN INJECTION) 2000 MCG/ML [Suspect]
     Indication: MUSCLE SPASTICITY
     Dosage: 500 - 550 MCG, DAILY, INTRATHECAL

REACTIONS (7)
  - CONDITION AGGRAVATED [None]
  - GAIT DISTURBANCE [None]
  - POSTOPERATIVE ADHESION [None]
  - DEVICE BREAKAGE [None]
  - MUSCLE SPASTICITY [None]
  - DRUG RESISTANCE [None]
  - MUSCLE SPASMS [None]
